FAERS Safety Report 7297766-2 (Version None)
Quarter: 2011Q1

REPORT INFORMATION
  Report Type: 
  Country: None (occurrence: None)
  Receive Date: 20110217
  Receipt Date: 20110207
  Transmission Date: 20110831
  Serious: Yes (Hospitalization, Other)
  Sender: FDA-Public Use
  Company Number: US-ELI_LILLY_AND_COMPANY-US201102002297

PATIENT
  Sex: Female

DRUGS (2)
  1. HUMULIN N [Suspect]
     Indication: DIABETES MELLITUS
     Dosage: 17 U, DAILY (1/D)
  2. LANTUS [Concomitant]

REACTIONS (11)
  - DRUG DOSE OMISSION [None]
  - BLINDNESS [None]
  - INJURY [None]
  - CARDIAC PACEMAKER INSERTION [None]
  - EATING DISORDER [None]
  - BLOOD GLUCOSE INCREASED [None]
  - CATARACT [None]
  - FALL [None]
  - MYOCARDIAL INFARCTION [None]
  - AMNESIA [None]
  - PROCEDURAL COMPLICATION [None]
